FAERS Safety Report 5885313-9 (Version None)
Quarter: 2008Q3

REPORT INFORMATION
  Report Type: 
  Country: None (occurrence: None)
  Receive Date: 20080916
  Receipt Date: 20080909
  Transmission Date: 20090109
  Serious: Yes (Other)
  Sender: FDA-Public Use
  Company Number: US-PFIZER INC-2008076511

PATIENT
  Sex: Female
  Weight: 117.9 kg

DRUGS (10)
  1. GLUCOTROL XL [Suspect]
     Indication: BLOOD GLUCOSE ABNORMAL
     Route: 048
     Dates: start: 20080818
  2. NORVASC [Concomitant]
  3. IBANDRONATE SODIUM [Concomitant]
  4. LASIX [Concomitant]
  5. SPIRONOLACTONE [Concomitant]
  6. ACTOS [Concomitant]
  7. SYNTHROID [Concomitant]
  8. COUMADIN [Concomitant]
  9. DOXEPIN HCL [Concomitant]
  10. VYTORIN [Concomitant]

REACTIONS (3)
  - DYSURIA [None]
  - MICTURITION FREQUENCY DECREASED [None]
  - RENAL DISORDER [None]
